FAERS Safety Report 23487300 (Version 2)
Quarter: 2024Q1

REPORT INFORMATION
  Report Type: Spontaneous
  Country: US (occurrence: US)
  Receive Date: 20240206
  Receipt Date: 20240315
  Transmission Date: 20240409
  Serious: Yes (Other)
  Sender: FDA-Public Use
  Company Number: US-BAYER-2024A016243

PATIENT
  Age: 16 Year
  Sex: Male

DRUGS (3)
  1. JIVI [Suspect]
     Active Substance: DAMOCTOCOG ALFA PEGOL
     Dosage: 1500 IU, PRN
     Route: 042
  2. JIVI [Suspect]
     Active Substance: DAMOCTOCOG ALFA PEGOL
     Dosage: 3 ADDITIONAL DOSES WERE GIVEN TO TREAT THE LEFT ANKLE
     Route: 042
     Dates: start: 20240108, end: 20240108
  3. JIVI [Suspect]
     Active Substance: DAMOCTOCOG ALFA PEGOL
     Dosage: 2 ADDITIONAL DOSES NEEDED FOR LEFT ANKLE BLEED
     Route: 042
     Dates: start: 20240216, end: 20240216

REACTIONS (2)
  - Haemorrhage [None]
  - Haemorrhage [Recovering/Resolving]

NARRATIVE: CASE EVENT DATE: 20240108
